FAERS Safety Report 6059388-0 (Version None)
Quarter: 2009Q1

REPORT INFORMATION
  Report Type: 
  Country: None (occurrence: None)
  Receive Date: 20090130
  Receipt Date: 20090123
  Transmission Date: 20090719
  Serious: Yes (Other)
  Sender: FDA-Public Use
  Company Number: AT-AMGEN-UK330047

PATIENT
  Sex: Female
  Weight: 60 kg

DRUGS (2)
  1. VECTIBIX [Suspect]
     Indication: COLORECTAL CANCER
     Route: 042
     Dates: start: 20090122, end: 20090122
  2. IRINOTECAN HCL [Concomitant]
     Route: 042
     Dates: start: 20090122, end: 20090122

REACTIONS (4)
  - FLUSHING [None]
  - HYPERSENSITIVITY [None]
  - SPEECH DISORDER [None]
  - VOMITING [None]
